FAERS Safety Report 19828165 (Version 1)
Quarter: 2021Q3

REPORT INFORMATION
  Report Type: Spontaneous
  Country: IR (occurrence: IR)
  Receive Date: 20210914
  Receipt Date: 20210914
  Transmission Date: 20211014
  Serious: Yes (Life-Threatening, Hospitalization, Other)
  Sender: FDA-Public Use
  Company Number: IR-LUPIN PHARMACEUTICALS INC.-2021-16921

PATIENT
  Age: 26 Year
  Sex: Male

DRUGS (1)
  1. LAMOTRIGINE TABLETS 100 MG [Suspect]
     Active Substance: LAMOTRIGINE
     Indication: PRODUCT USED FOR UNKNOWN INDICATION
     Dosage: 10 DOSAGE FORM
     Route: 048

REACTIONS (6)
  - Intentional overdose [Unknown]
  - Mydriasis [Recovered/Resolved]
  - Accelerated idioventricular rhythm [Recovered/Resolved]
  - Coma [Recovered/Resolved]
  - Blood pressure immeasurable [Recovered/Resolved]
  - Suicide attempt [Unknown]
